FAERS Safety Report 4952565-9 (Version None)
Quarter: 2006Q1

REPORT INFORMATION
  Report Type: 
  Country: None (occurrence: None)
  Receive Date: 20060317
  Receipt Date: 20060307
  Transmission Date: 20060701
  Serious: Yes (Hospitalization)
  Sender: FDA-Public Use
  Company Number: 2006033675

PATIENT
  Age: 53 Year
  Sex: Female

DRUGS (5)
  1. AMLODIPINE [Suspect]
     Indication: RAYNAUD'S PHENOMENON
     Dosage: 5 MG (5 MG, DAILY)
  2. PAROXETINE HYDROCHLORIDE [Suspect]
     Indication: ILL-DEFINED DISORDER
  3. STILNOX (ZOLPIDEM) [Suspect]
     Indication: ILL-DEFINED DISORDER
  4. NAFTILUX (NAFTIDROFURYL OXALATE) [Concomitant]
  5. GINKGO BILOBA (GINKGO BILOBA) [Concomitant]

REACTIONS (2)
  - CONVULSION [None]
  - OFF LABEL USE [None]
